FAERS Safety Report 6407329-6 (Version None)
Quarter: 2009Q4

REPORT INFORMATION
  Report Type: 
  Country: None (occurrence: None)
  Receive Date: 20091020
  Receipt Date: 20091014
  Transmission Date: 20100525
  Serious: Yes (Congenital Anomaly)
  Sender: FDA-Public Use
  Company Number: B0597375B

PATIENT

DRUGS (1)
  1. AUGMENTIN [Suspect]
     Dosage: 625MG TWICE PER DAY
     Dates: start: 20090205, end: 20090209

REACTIONS (3)
  - CEREBRAL VENTRICLE DILATATION [None]
  - CONGENITAL CENTRAL NERVOUS SYSTEM ANOMALY [None]
  - DRUG EXPOSURE DURING PREGNANCY [None]
